FAERS Safety Report 25371753 (Version 1)
Quarter: 2025Q2

REPORT INFORMATION
  Report Type: Spontaneous
  Country: ES (occurrence: ES)
  Receive Date: 20250529
  Receipt Date: 20250529
  Transmission Date: 20250716
  Serious: Yes (Other)
  Sender: AMGEN
  Company Number: ES-AMGEN-ESPSP2025036761

PATIENT
  Sex: Male

DRUGS (2)
  1. NPLATE [Suspect]
     Active Substance: ROMIPLOSTIM
     Indication: Immune thrombocytopenia
     Route: 065
  2. NPLATE [Suspect]
     Active Substance: ROMIPLOSTIM
     Route: 065

REACTIONS (2)
  - Immune thrombocytopenia [Unknown]
  - Peripheral sensorimotor neuropathy [Not Recovered/Not Resolved]
